FAERS Safety Report 9267259 (Version 1)
Quarter: 2013Q2

REPORT INFORMATION
  Report Type: Report from Study
  Country: CA (occurrence: CA)
  Receive Date: 20130502
  Receipt Date: 20130502
  Transmission Date: 20140414
  Serious: Yes (Hospitalization)
  Sender: FDA-Public Use
  Company Number: CA-JNJFOC-20130416039

PATIENT
  Age: 33 Year
  Sex: Male
  Weight: 109 kg

DRUGS (6)
  1. REMICADE [Suspect]
     Indication: PSORIASIS
     Route: 042
     Dates: start: 20090421
  2. FOLIC ACID [Concomitant]
     Route: 065
  3. METHOTREXATE [Concomitant]
     Dosage: 8 TABLETS
     Route: 065
  4. TOPICORTE [Concomitant]
     Dosage: FRIDAY
     Route: 065
  5. OLANZAPINE [Concomitant]
     Route: 065
  6. VALACYCLOVIR [Concomitant]
     Route: 065

REACTIONS (1)
  - Tonsillectomy [Recovered/Resolved]
